FAERS Safety Report 7242551-0 (Version None)
Quarter: 2010Q4

REPORT INFORMATION
  Report Type: 
  Country: None (occurrence: None)
  Receive Date: 20101130
  Receipt Date: 20090724
  Transmission Date: 20110411
  Serious: Yes (Hospitalization)
  Sender: FDA-Public Use
  Company Number: 2009SP016940

PATIENT
  Age: 28 Year
  Sex: Female
  Weight: 81.6475 kg

DRUGS (3)
  1. NUVARING [Suspect]
     Indication: CONTRACEPTION
     Dosage: 1 DF; QM; VAG
     Route: 067
     Dates: start: 20041201, end: 20050501
  2. WELLBUTRIN [Concomitant]
  3. ORTHO EVRA [Concomitant]

REACTIONS (2)
  - SKIN PAPILLOMA [None]
  - TRANSVERSE SINUS THROMBOSIS [None]
